FAERS Safety Report 24622001 (Version 1)
Quarter: 2024Q4

REPORT INFORMATION
  Report Type: Spontaneous
  Country: CN (occurrence: CN)
  Receive Date: 20241114
  Receipt Date: 20241114
  Transmission Date: 20250115
  Serious: Yes (Other)
  Sender: NOVARTIS
  Company Number: CN-002147023-NVSC2024CN219859

PATIENT
  Age: 72 Year
  Sex: Female
  Weight: 70 kg

DRUGS (1)
  1. SACUBITRIL\VALSARTAN [Suspect]
     Active Substance: SACUBITRIL\VALSARTAN
     Indication: Hypertension
     Dosage: 50 MG, BID
     Route: 048
     Dates: start: 20241031, end: 20241104

REACTIONS (2)
  - Hyperkalaemia [Recovering/Resolving]
  - Blood creatinine increased [Unknown]

NARRATIVE: CASE EVENT DATE: 20241104
